FAERS Safety Report 14312288 (Version 1)
Quarter: 2017Q4

REPORT INFORMATION
  Report Type: Spontaneous
  Country: US (occurrence: US)
  Receive Date: 20171220
  Receipt Date: 20171220
  Transmission Date: 20180321
  Serious: Yes (Hospitalization)
  Sender: FDA-Public Use
  Company Number: None

PATIENT
  Age: 68 Year
  Sex: Male

DRUGS (1)
  1. LISINOPRIL. [Suspect]
     Active Substance: LISINOPRIL
     Indication: HYPERTENSION
     Route: 048
     Dates: start: 20160704, end: 20170713

REACTIONS (5)
  - Fall [None]
  - Hyperkalaemia [None]
  - Ankle fracture [None]
  - Asthenia [None]
  - Dialysis [None]

NARRATIVE: CASE EVENT DATE: 20170713
